FAERS Safety Report 9056608 (Version 2)
Quarter: 2013Q2

REPORT INFORMATION
  Report Type: Report from Study
  Country: US (occurrence: US)
  Receive Date: 20130204
  Receipt Date: 20130417
  Transmission Date: 20140414
  Serious: Yes (Hospitalization, Other)
  Sender: FDA-Public Use
  Company Number: US-ABBOTT-13P-163-1042045-00

PATIENT
  Age: 68 Year
  Sex: Female
  Weight: 83.99 kg

DRUGS (6)
  1. HUMIRA [Suspect]
     Indication: PSORIATIC ARTHROPATHY
     Dates: start: 201011, end: 201207
  2. HUMIRA [Suspect]
     Dates: end: 201212
  3. HUMIRA [Suspect]
     Dates: start: 20130114
  4. NEXIUM [Concomitant]
     Indication: GASTROOESOPHAGEAL REFLUX DISEASE
  5. AMLODIPINE [Concomitant]
     Indication: HYPERTENSION
  6. METOPROLOL [Concomitant]
     Indication: HYPERTENSION

REACTIONS (8)
  - Osteoarthritis [Recovered/Resolved]
  - Arthritis [Recovered/Resolved]
  - Arthralgia [Recovered/Resolved]
  - Breast cyst [Recovered/Resolved]
  - Arthralgia [Not Recovered/Not Resolved]
  - Joint stiffness [Not Recovered/Not Resolved]
  - Arthralgia [Not Recovered/Not Resolved]
  - Arthralgia [Not Recovered/Not Resolved]
